FAERS Safety Report 17353972 (Version 2)
Quarter: 2020Q1

REPORT INFORMATION
  Report Type: Report from Study
  Country: JP (occurrence: JP)
  Receive Date: 20200131
  Receipt Date: 20200226
  Transmission Date: 20200409
  Serious: Yes (Death, Other)
  Sender: FDA-Public Use
  Company Number: JP-GLAXOSMITHKLINE-JP2020JPN016819

PATIENT
  Age: 70 Year
  Sex: Female
  Weight: 62 kg

DRUGS (44)
  1. LANSOPRAZOLE ORALLY DISINTEGRATING TABLETS [Concomitant]
     Indication: GASTROOESOPHAGEAL REFLUX DISEASE
     Dosage: 30 MG, QD(AFTER BREAKFAST)
  2. DAIPHEN COMBINATION TABLETS [Concomitant]
     Indication: ANTIFUNGAL PROPHYLAXIS
     Dosage: 1 DF, QD(AFTER BREAKFAST)
     Dates: start: 20181212
  3. PREDONINE [Concomitant]
     Active Substance: PREDNISOLONE
     Indication: EOSINOPHILIC GRANULOMATOSIS WITH POLYANGIITIS
     Dosage: 5 MG, QD(AFTER BREAKFAST)
     Dates: start: 20151028
  4. TRANEXAMIC ACID TABLETS [Concomitant]
     Active Substance: TRANEXAMIC ACID
     Indication: PHARYNGITIS
     Dosage: 1500 MG, 1D
     Dates: start: 20191125, end: 20191129
  5. BISOPROLOL FUMARATE TABLET [Concomitant]
     Indication: CARDIOMYOPATHY
     Dosage: 0.625 MG, BID(AFTER BREAKFAST, AFTER DINNER)
     Dates: start: 20190219
  6. SPIRIVA RESPIMAT [Concomitant]
     Active Substance: TIOTROPIUM BROMIDE
     Indication: EOSINOPHILIC GRANULOMATOSIS WITH POLYANGIITIS
     Dosage: 5 ?G, QD
     Dates: start: 20160406
  7. BACTRAMIN [Concomitant]
     Active Substance: SULFAMETHOXAZOLE\TRIMETHOPRIM
     Dosage: UNK
  8. CALONAL TABLET [Concomitant]
     Indication: ROTATOR CUFF SYNDROME
     Dosage: 500 MG, QID(EACH AFTER MEALS, BEFORE BEDTIME)
     Dates: start: 20190711
  9. PREDONINE [Concomitant]
     Active Substance: PREDNISOLONE
     Dosage: 7 MG, 1D
     Dates: start: 20191223
  10. ELIQUIS [Concomitant]
     Active Substance: APIXABAN
     Indication: CARDIOMYOPATHY
     Dosage: 10 MG, 1D
     Dates: start: 20190412
  11. MEPOLIZUMAB [Suspect]
     Active Substance: MEPOLIZUMAB
     Indication: EOSINOPHILIC GRANULOMATOSIS WITH POLYANGIITIS
     Dosage: 300 MG, QD
     Route: 058
     Dates: start: 20190905, end: 20190905
  12. MEPOLIZUMAB [Suspect]
     Active Substance: MEPOLIZUMAB
     Dosage: 300 MG, QD
     Route: 058
     Dates: start: 20191018, end: 20191018
  13. DICLOFENAC SODIUM SUPPOSITORY [Concomitant]
     Indication: MUSCLE INJURY
  14. PREDONINE [Concomitant]
     Active Substance: PREDNISOLONE
     Dosage: 8 MG, 1D
     Dates: end: 20191222
  15. TRANEXAMIC ACID TABLETS [Concomitant]
     Active Substance: TRANEXAMIC ACID
     Dosage: 1500 MG, 1D
     Dates: start: 20191223, end: 20191227
  16. SPIRONOLACTONE TABLETS [Concomitant]
     Active Substance: SPIRONOLACTONE
     Indication: PERICARDITIS
  17. ENALAPRIL MALEATE TABLETS [Concomitant]
     Indication: CARDIAC FAILURE
  18. AMBROXOL HYDROCHLORIDE SUSTAINED-RELEASE OD TABLETS [Concomitant]
     Indication: ASTHMA
  19. DICLOFENAC SODIUM SUPPOSITORY [Concomitant]
     Indication: SPONDYLITIC MYELOPATHY
  20. ALENDRONATE SODIUM TABLET [Concomitant]
     Active Substance: ALENDRONATE SODIUM
     Indication: OSTEOPOROSIS
     Dosage: 35 MG, WE(WHEN GETTING UP/EVERY THRUSDAY)
     Dates: start: 20181213
  21. PREDONINE [Concomitant]
     Active Substance: PREDNISOLONE
     Indication: ASTHMA
     Dosage: 7 MG, 1D
     Dates: end: 20190807
  22. PREDNISOLONE TABLETS [Concomitant]
     Active Substance: PREDNISOLONE
     Indication: EOSINOPHILIC GRANULOMATOSIS WITH POLYANGIITIS
     Dosage: 2 MG, QD(AFTER BREAKFAST)
     Dates: start: 20151028
  23. ELIQUIS [Concomitant]
     Active Substance: APIXABAN
     Indication: VENTRICULAR TACHYCARDIA
  24. MEPOLIZUMAB [Suspect]
     Active Substance: MEPOLIZUMAB
     Dosage: 300 MG, QD
     Route: 058
     Dates: start: 20191213, end: 20191213
  25. CALONAL TABLET [Concomitant]
     Indication: MUSCLE INJURY
  26. DICLOFENAC SODIUM SUPPOSITORY [Concomitant]
     Indication: ROTATOR CUFF SYNDROME
     Dosage: 50 MG, BID(MORNING, EVENING)
     Dates: start: 20190808
  27. ELIQUIS [Concomitant]
     Active Substance: APIXABAN
     Indication: CARDIAC FAILURE
  28. BISOPROLOL FUMARATE TABLET [Concomitant]
     Indication: CARDIAC FAILURE
  29. ENALAPRIL MALEATE TABLETS [Concomitant]
     Indication: CARDIOMYOPATHY
     Dosage: 2.5 MG, 1D
     Dates: start: 20181013
  30. CALONAL TABLET [Concomitant]
     Indication: SPONDYLITIC MYELOPATHY
  31. PREDONINE [Concomitant]
     Active Substance: PREDNISOLONE
     Dosage: 10 MG, 1D
     Dates: start: 20190808
  32. PREDNISOLONE TABLETS [Concomitant]
     Active Substance: PREDNISOLONE
     Indication: ASTHMA
  33. RELVAR ELLIPTA [Concomitant]
     Active Substance: FLUTICASONE FUROATE\VILANTEROL TRIFENATATE
     Indication: ASTHMA
  34. SPIRONOLACTONE TABLETS [Concomitant]
     Active Substance: SPIRONOLACTONE
     Indication: CARDIOMYOPATHY
     Dosage: 12.5 MG, 1D
     Dates: start: 20181208
  35. SPIRONOLACTONE TABLETS [Concomitant]
     Active Substance: SPIRONOLACTONE
     Indication: CARDIAC FAILURE
  36. MEPOLIZUMAB [Suspect]
     Active Substance: MEPOLIZUMAB
     Dosage: 300 MG, QD
     Route: 058
     Dates: start: 20200109, end: 20200109
  37. RELVAR ELLIPTA [Concomitant]
     Active Substance: FLUTICASONE FUROATE\VILANTEROL TRIFENATATE
     Indication: EOSINOPHILIC GRANULOMATOSIS WITH POLYANGIITIS
     Dosage: 200 ?G, QD
  38. ROSUVASTATIN CALCIUM TABLETS [Concomitant]
     Active Substance: ROSUVASTATIN CALCIUM
     Indication: DYSLIPIDAEMIA
     Dosage: 5 MG, QD(AFTER BREAKFAST)
     Dates: start: 20181228
  39. SPIRIVA RESPIMAT [Concomitant]
     Active Substance: TIOTROPIUM BROMIDE
     Indication: ASTHMA
  40. AMBROXOL HYDROCHLORIDE SUSTAINED-RELEASE OD TABLETS [Concomitant]
     Indication: BRONCHITIS CHRONIC
     Dosage: 45 MG, QD(AFTER DINNER)
  41. NOVAMIN (JAPAN) [Concomitant]
     Indication: NAUSEA
     Dosage: 5 MG, BID(AFTER BREAKFAST, AFTER DINNER)
     Dates: start: 20191018
  42. BISOPROLOL FUMARATE TABLET [Concomitant]
     Indication: VENTRICULAR TACHYCARDIA
  43. THEODUR TABLETS [Concomitant]
     Indication: EOSINOPHILIC GRANULOMATOSIS WITH POLYANGIITIS
     Dosage: 100 MG, BID(AFTER BREAKFAST, AFTER DINNER)
  44. THEODUR TABLETS [Concomitant]
     Indication: ASTHMA

REACTIONS (2)
  - Urticaria [Recovered/Resolved]
  - Cerebral haemorrhage [Fatal]

NARRATIVE: CASE EVENT DATE: 20191213
